FAERS Safety Report 10392219 (Version 4)
Quarter: 2016Q2

REPORT INFORMATION
  Report Type: Spontaneous
  Country: JP (occurrence: JP)
  Receive Date: 20140819
  Receipt Date: 20160407
  Transmission Date: 20160815
  Serious: Yes (Hospitalization)
  Sender: FDA-Public Use
  Company Number: JP-ROCHE-1448389

PATIENT
  Age: 23 Year
  Sex: Female

DRUGS (3)
  1. RIVOTRIL [Suspect]
     Active Substance: CLONAZEPAM
     Indication: ADJUSTMENT DISORDER
     Dosage: LARGE AMOUNT OF ORAL,TAKEN AS NEEDED
     Route: 048
  2. MEILAX [Suspect]
     Active Substance: ETHYL LOFLAZEPATE
     Indication: ADJUSTMENT DISORDER
     Dosage: A LARGE AMOUNT OF ORAL,FRACTIONATION DOSE UNCERTAIN FREQUENCY AND DOSE INTERVAL UNCERTAINTY
     Route: 048
  3. SELENICA-R [Suspect]
     Active Substance: VALPROATE SODIUM
     Indication: ADJUSTMENT DISORDER
     Dosage: A LARGE AMOUNT OF ORAL,FRACTIONATION DOSE UNCERTAIN FREQUENCY AND DOSE INTERVAL UNCERTAINTY
     Route: 048

REACTIONS (3)
  - Hyperammonaemia [Unknown]
  - Off label use [Unknown]
  - Overdose [Unknown]
